FAERS Safety Report 16083647 (Version 2)
Quarter: 2019Q2

REPORT INFORMATION
  Report Type: Spontaneous
  Country: CA (occurrence: CA)
  Receive Date: 20190318
  Receipt Date: 20190415
  Transmission Date: 20190711
  Serious: Yes (Hospitalization, Other)
  Sender: FDA-Public Use
  Company Number: CA-VIIV HEALTHCARE LIMITED-CA2019GSK048075

PATIENT
  Age: 38 Year
  Sex: Male

DRUGS (1)
  1. TRIUMEQ [Suspect]
     Active Substance: ABACAVIR SULFATE\DOLUTEGRAVIR SODIUM\LAMIVUDINE
     Indication: HIV INFECTION
     Dosage: UNK UNK, QD
     Route: 048
     Dates: start: 201902, end: 201903

REACTIONS (2)
  - Hospitalisation [Unknown]
  - Tuberculosis [Recovering/Resolving]

NARRATIVE: CASE EVENT DATE: 201902
